FAERS Safety Report 17629712 (Version 1)
Quarter: 2020Q2

REPORT INFORMATION
  Report Type: Spontaneous
  Country: US (occurrence: US)
  Receive Date: 20200403
  Receipt Date: 20200403
  Transmission Date: 20200713
  Serious: Yes (Hospitalization)
  Sender: FDA-Public Use
  Company Number: None

PATIENT
  Age: 46 Year
  Sex: Male
  Weight: 127 kg

DRUGS (3)
  1. ESCITALOPRAM [Concomitant]
     Active Substance: ESCITALOPRAM OXALATE
  2. LISINOPRIL AND HYDROCHLOROTHIAZIDE [Suspect]
     Active Substance: HYDROCHLOROTHIAZIDE\LISINOPRIL
     Indication: HYPERTENSION
     Route: 048
  3. BYSTOLIC [Concomitant]
     Active Substance: NEBIVOLOL HYDROCHLORIDE

REACTIONS (2)
  - Obstructive airways disorder [None]
  - Swollen tongue [None]

NARRATIVE: CASE EVENT DATE: 20200331
